FAERS Safety Report 6295955-7 (Version None)
Quarter: 2009Q3

REPORT INFORMATION
  Report Type: 
  Country: None (occurrence: None)
  Receive Date: 20090803
  Receipt Date: 20090803
  Transmission Date: 20100115
  Serious: Yes (Hospitalization)
  Sender: FDA-Public Use
  Company Number: None

PATIENT
  Age: 51 Year
  Sex: Female
  Weight: 58.9676 kg

DRUGS (2)
  1. SAVELLA [Suspect]
     Indication: FIBROMYALGIA
     Dosage: 2 WEEK TITRATION ENDING 50MG 2 X A DAY PO
     Route: 048
     Dates: start: 20090703, end: 20090724
  2. SAVELLA [Suspect]
     Indication: PAIN
     Dosage: 2 WEEK TITRATION ENDING 50MG 2 X A DAY PO
     Route: 048
     Dates: start: 20090703, end: 20090724

REACTIONS (18)
  - ABASIA [None]
  - ANXIETY [None]
  - CHEST DISCOMFORT [None]
  - COLD SWEAT [None]
  - DISTURBANCE IN ATTENTION [None]
  - DIZZINESS [None]
  - DYSPNOEA [None]
  - FATIGUE [None]
  - FEELING HOT [None]
  - HYPOTENSION [None]
  - MUSCULOSKELETAL PAIN [None]
  - MYOCARDIAL INFARCTION [None]
  - NAUSEA [None]
  - NECK PAIN [None]
  - PAIN IN EXTREMITY [None]
  - SKIN DISCOLOURATION [None]
  - TREMOR [None]
  - WHEELCHAIR USER [None]
